FAERS Safety Report 9472637 (Version 1)
Quarter: 2013Q3

REPORT INFORMATION
  Report Type: Report from Study
  Country: FR (occurrence: FR)
  Receive Date: 20130823
  Receipt Date: 20130823
  Transmission Date: 20140515
  Serious: Yes (Death)
  Sender: FDA-Public Use
  Company Number: FR-ASTELLAS-2013EU007161

PATIENT
  Age: 71 Year
  Sex: Male
  Weight: 61 kg

DRUGS (2)
  1. ENZALUTAMIDE [Suspect]
     Indication: PROSTATE CANCER
     Dosage: 160 MG, UNKNOWN/D
     Route: 048
     Dates: start: 20130719, end: 20130805
  2. ALPRAZOLAM [Concomitant]
     Indication: DEPRESSION
     Dosage: 0.5 MG/DAY, UNKNOWN/D
     Route: 048
     Dates: start: 20130801, end: 20130805

REACTIONS (1)
  - Completed suicide [Fatal]
